FAERS Safety Report 7712047-8 (Version None)
Quarter: 2011Q3

REPORT INFORMATION
  Report Type: 
  Country: None (occurrence: None)
  Receive Date: 20110826
  Receipt Date: 20110822
  Transmission Date: 20111222
  Serious: Yes (Other)
  Sender: FDA-Public Use
  Company Number: PT-PFIZER INC-2011194495

PATIENT
  Age: 50 Year
  Sex: Female
  Weight: 63 kg

DRUGS (1)
  1. ECALTA [Suspect]
     Indication: FUNGAL INFECTION
     Dosage: 200 MG, 1X/DAY
     Route: 042
     Dates: start: 20110818, end: 20110818

REACTIONS (5)
  - DYSPNOEA [None]
  - ABDOMINAL PAIN UPPER [None]
  - ERYTHEMA [None]
  - TACHYCARDIA [None]
  - CHEST PAIN [None]
